FAERS Safety Report 17698529 (Version 1)
Quarter: 2020Q2

REPORT INFORMATION
  Report Type: Spontaneous
  Country: CH (occurrence: CH)
  Receive Date: 20200423
  Receipt Date: 20200423
  Transmission Date: 20200714
  Serious: Yes (Death)
  Sender: FDA-Public Use
  Company Number: CH-TEVA-2020-CH-1228476

PATIENT
  Sex: Female

DRUGS (15)
  1. DULOXETIN MEPHA [Suspect]
     Active Substance: DULOXETINE HYDROCHLORIDE
     Dosage: 120 MILLIGRAM DAILY; 1-0-1-0
     Route: 065
  2. TARGIN [Suspect]
     Active Substance: NALOXONE HYDROCHLORIDE\OXYCODONE HYDROCHLORIDE
     Dosage: 10 MG/5 MG: 1-0-1-0
     Route: 065
  3. RIVOTRIL [Suspect]
     Active Substance: CLONAZEPAM
     Dosage: AS NECESSARY
     Route: 045
  4. RIVOTRIL [Suspect]
     Active Substance: CLONAZEPAM
     Dosage: 3 MILLIGRAM DAILY;
     Route: 065
  5. DEPAKINE CHRONO [Suspect]
     Active Substance: VALPROATE SODIUM
     Dosage: 1000 MILLIGRAM DAILY; 1-0-1-0
     Route: 065
  6. ASPIRIN CARDIO [Suspect]
     Active Substance: ASPIRIN
     Dosage: 100 MILLIGRAM DAILY; 1-0-0-0
     Route: 065
  7. MACROGOL MEPHA [Suspect]
     Active Substance: POLYETHYLENE GLYCOL 3350\POTASSIUM CHLORIDE\SODIUM BICARBONATE\SODIUM CHLORIDE
     Dosage: 1 DOSAGE FORMS DAILY;
     Route: 065
  8. IMIGRAN [Concomitant]
     Active Substance: SUMATRIPTAN SUCCINATE
     Dosage: INJECTION 6 MG/0.5 ML 2X PER DAY PRN; AS NECESSARY
     Dates: end: 20191203
  9. PANTOPRAZOL MEPHA [Suspect]
     Active Substance: PANTOPRAZOLE SODIUM
     Dosage: 40 MILLIGRAM DAILY; 1-0-0-0
     Route: 065
  10. BEPANTHEN [DEXPANTHENOL] [Suspect]
     Active Substance: DEXPANTHENOL
     Dosage: 1-1-0-1
     Route: 065
  11. ERENUMAB [Suspect]
     Active Substance: ERENUMAB
     Indication: OFF LABEL USE
     Route: 030
     Dates: start: 2019, end: 20191121
  12. MG 5-ORALEFF [Suspect]
     Active Substance: MAGNESIUM ASPARTATE
     Dosage: 7.5 MILLIMOL DAILY; 0-0-0-1
     Route: 065
  13. TOPAMAX [Suspect]
     Active Substance: TOPIRAMATE
     Dosage: 600 MILLIGRAM DAILY; 3-0-3-0
     Route: 065
  14. RIVOTRIL [Suspect]
     Active Substance: CLONAZEPAM
     Dosage: 1-0-1-0
     Route: 048
  15. CONDROSULF [Suspect]
     Active Substance: SODIUM CHONDROITIN SULFATE
     Dosage: 1600 MILLIGRAM DAILY; 1-0-1-0
     Route: 065

REACTIONS (1)
  - Sudden death [Fatal]
